FAERS Safety Report 9219027 (Version 1)
Quarter: 2013Q2

REPORT INFORMATION
  Report Type: Spontaneous
  Country: US (occurrence: US)
  Receive Date: 20130409
  Receipt Date: 20130409
  Transmission Date: 20140414
  Serious: Yes (Hospitalization)
  Sender: FDA-Public Use
  Company Number: US-TEVA-396664USA

PATIENT
  Age: 56 Year
  Sex: Female

DRUGS (5)
  1. PROAIR HFA [Suspect]
     Indication: PROPHYLAXIS AGAINST BRONCHOSPASM
  2. THEOPHYLLINE [Concomitant]
     Indication: ASTHMA
  3. OMEPRAZOLE [Concomitant]
  4. ADVAIR [Concomitant]
     Indication: ASTHMA
  5. NEBULIZED ALBUTEROL [Concomitant]
     Indication: ASTHMA

REACTIONS (4)
  - Asthma [Recovered/Resolved]
  - Dysphonia [Not Recovered/Not Resolved]
  - Dyspnoea [Not Recovered/Not Resolved]
  - Wheezing [Not Recovered/Not Resolved]
